FAERS Safety Report 7754836-X (Version None)
Quarter: 2011Q3

REPORT INFORMATION
  Report Type: 
  Country: None (occurrence: None)
  Receive Date: 20110916
  Receipt Date: 20110907
  Transmission Date: 20111222
  Serious: No
  Sender: FDA-Public Use
  Company Number: US-BIOGENIDEC-2011BI021104

PATIENT
  Age: 54 Year
  Sex: Female

DRUGS (4)
  1. ANTIBIOTICS [Concomitant]
     Indication: CYSTITIS
  2. TYSABRI [Suspect]
     Indication: MULTIPLE SCLEROSIS
     Route: 042
     Dates: start: 20110630
  3. FERGON [Concomitant]
     Indication: HAEMOGLOBIN DECREASED
     Dates: start: 20110801
  4. CHROMAGEN FA [Concomitant]
     Indication: HAEMOGLOBIN DECREASED

REACTIONS (9)
  - FATIGUE [None]
  - HEADACHE [None]
  - VIRAL INFECTION [None]
  - PAIN [None]
  - HAEMATOCRIT DECREASED [None]
  - CYSTITIS [None]
  - FALL [None]
  - CONTUSION [None]
  - HAEMOGLOBIN DECREASED [None]
